FAERS Safety Report 15721893 (Version 2)
Quarter: 2018Q4

REPORT INFORMATION
  Report Type: Spontaneous
  Country: US (occurrence: US)
  Receive Date: 20181214
  Receipt Date: 20181219
  Transmission Date: 20190205
  Serious: Yes (Other)
  Sender: FDA-Public Use
  Company Number: US-PFIZER INC-2018512292

PATIENT
  Sex: Male

DRUGS (1)
  1. AMLODIPINE BESILATE [Suspect]
     Active Substance: AMLODIPINE BESYLATE
     Indication: CARDIAC FAILURE CONGESTIVE
     Dosage: UNK

REACTIONS (19)
  - Syncope [Unknown]
  - Heart rate irregular [Unknown]
  - Oedema [Unknown]
  - Wheezing [Unknown]
  - Waist circumference increased [Unknown]
  - Product dose omission [Unknown]
  - Cough [Unknown]
  - Fatigue [Unknown]
  - Heart rate increased [Unknown]
  - Asthenia [Unknown]
  - Dizziness [Unknown]
  - Dyspnoea [Unknown]
  - Hyperaesthesia [Unknown]
  - Product use in unapproved indication [Unknown]
  - Hypoaesthesia [Unknown]
  - Chest pain [Unknown]
  - Exercise tolerance decreased [Unknown]
  - Nocturia [Unknown]
  - Paraesthesia [Unknown]
